FAERS Safety Report 5908552-7 (Version None)
Quarter: 2008Q3

REPORT INFORMATION
  Report Type: 
  Country: None (occurrence: None)
  Receive Date: 20080929
  Receipt Date: 20080922
  Transmission Date: 20090109
  Serious: Yes (Hospitalization)
  Sender: FDA-Public Use
  Company Number: 2008AL004175

PATIENT
  Age: 83 Year
  Sex: Female
  Weight: 59.8748 kg

DRUGS (7)
  1. DIGOXIN [Suspect]
     Indication: HEART RATE IRREGULAR
     Dosage: 0.125MG, DAILY, PO
     Route: 048
     Dates: start: 19930101, end: 20080509
  2. VITAMINS [Concomitant]
  3. THYROID (UNSPECIFIED) [Concomitant]
  4. MAXZIDE [Concomitant]
  5. ARMOUR THYROID [Concomitant]
  6. TRIAMTERENE AND HYDROCHLOROTHIAZIDE [Concomitant]
  7. KLONOPIN [Concomitant]

REACTIONS (9)
  - ASTHENIA [None]
  - CHEST DISCOMFORT [None]
  - CHRONIC LYMPHOCYTIC LEUKAEMIA [None]
  - DIZZINESS [None]
  - HEART RATE INCREASED [None]
  - HEART RATE IRREGULAR [None]
  - HYPERTENSION [None]
  - MASTECTOMY [None]
  - NAUSEA [None]
